FAERS Safety Report 11976159 (Version 1)
Quarter: 2016Q1

REPORT INFORMATION
  Report Type: Report from Study
  Country: US (occurrence: US)
  Receive Date: 20160129
  Receipt Date: 20160129
  Transmission Date: 20160526
  Serious: Yes (Other)
  Sender: FDA-Public Use
  Company Number: US-AMGEN-USASL2016009721

PATIENT
  Sex: Female

DRUGS (1)
  1. ENBREL [Suspect]
     Active Substance: ETANERCEPT
     Indication: RHEUMATOID ARTHRITIS
     Dosage: UNK UNK, UNK
     Route: 065
     Dates: start: 20101010

REACTIONS (10)
  - Skin mass [Unknown]
  - Rotator cuff syndrome [Unknown]
  - Hand deformity [Unknown]
  - Arthropathy [Unknown]
  - Limb operation [Unknown]
  - Bone graft [Unknown]
  - Musculoskeletal disorder [Unknown]
  - Abdominal hernia [Unknown]
  - Spinal operation [Unknown]
  - Impaired healing [Not Recovered/Not Resolved]

NARRATIVE: CASE EVENT DATE: 2012
